FAERS Safety Report 8980242 (Version 2)
Quarter: 2013Q1

REPORT INFORMATION
  Report Type: Report from Study
  Country: GB (occurrence: GB)
  Receive Date: 20121221
  Receipt Date: 20130313
  Transmission Date: 20140127
  Serious: Yes (Hospitalization)
  Sender: FDA-Public Use
  Company Number: GB-GLAXOSMITHKLINE-Z0006638D

PATIENT
  Age: 83 Year
  Sex: Male
  Weight: 61.5 kg

DRUGS (3)
  1. OFATUMUMAB [Suspect]
     Indication: CHRONIC LYMPHOCYTIC LEUKAEMIA
     Route: 042
     Dates: start: 20101117
  2. CHLORAMBUCIL [Suspect]
     Indication: CHRONIC LYMPHOCYTIC LEUKAEMIA
     Dosage: 10MGM2 CYCLIC
     Route: 048
     Dates: start: 20101117
  3. CLEXANE [Concomitant]
     Indication: THROMBOSIS PROPHYLAXIS
     Dosage: 69MG SINGLE DOSE
     Route: 058
     Dates: start: 20121104, end: 20121104

REACTIONS (1)
  - Chest pain [Recovered/Resolved]
